FAERS Safety Report 6854589-3 (Version None)
Quarter: 2010Q3

REPORT INFORMATION
  Report Type: 
  Country: None (occurrence: None)
  Receive Date: 20100717
  Receipt Date: 20080219
  Transmission Date: 20110219
  Serious: No
  Sender: FDA-Public Use
  Company Number: US-PFIZER INC-2008000062

PATIENT
  Sex: Male
  Weight: 90.7 kg

DRUGS (8)
  1. CHANTIX [Suspect]
     Indication: NICOTINE DEPENDENCE
     Dates: start: 20071101
  2. SIMVASTATIN [Concomitant]
     Route: 048
  3. EFFEXOR XR [Concomitant]
     Route: 048
  4. ACETYLSALICYLIC ACID [Concomitant]
     Route: 048
  5. SINEMET [Concomitant]
     Dosage: 10MG/100MG
     Route: 048
  6. IBUPROFEN [Concomitant]
     Route: 048
  7. GLUCOSAMINE [Concomitant]
     Route: 048
  8. MULTI-VITAMINS [Concomitant]

REACTIONS (1)
  - DYSGEUSIA [None]
